FAERS Safety Report 23226875 (Version 1)
Quarter: 2023Q4

REPORT INFORMATION
  Report Type: Spontaneous
  Country: CN (occurrence: None)
  Receive Date: 20231124
  Receipt Date: 20231124
  Transmission Date: 20240110
  Serious: Yes (Other)
  Sender: FDA-Public Use
  Company Number: 2023A264074

PATIENT
  Age: 35 Year
  Sex: Male

DRUGS (1)
  1. DAPAGLIFLOZIN [Suspect]
     Active Substance: DAPAGLIFLOZIN
     Indication: Weight decreased
     Route: 048
     Dates: start: 20231103, end: 20231104

REACTIONS (2)
  - Drug eruption [Unknown]
  - Blister rupture [Unknown]

NARRATIVE: CASE EVENT DATE: 20231104
